FAERS Safety Report 8816932 (Version 1)
Quarter: 2012Q4

REPORT INFORMATION
  Report Type: Spontaneous
  Country: US (occurrence: None)
  Receive Date: 20121002
  Receipt Date: 20121002
  Transmission Date: 20130627
  Serious: Yes (Death, Life-Threatening, Hospitalization)
  Sender: FDA-Public Use
  Company Number: None

PATIENT
  Age: 61 Year
  Sex: Male
  Weight: 109 kg

DRUGS (2)
  1. ZALTRAP [Suspect]
     Indication: METASTATIC COLORECTAL CANCER
     Route: 042
     Dates: start: 20120910, end: 20120910
  2. ZALTRAP [Suspect]
     Route: 042

REACTIONS (4)
  - Sepsis [None]
  - Abdominal pain [None]
  - Intestinal perforation [None]
  - Gastrointestinal perforation [None]
